FAERS Safety Report 14190105 (Version 1)
Quarter: 2017Q4

REPORT INFORMATION
  Report Type: Spontaneous
  Country: US (occurrence: US)
  Receive Date: 20171114
  Receipt Date: 20171114
  Transmission Date: 20180321
  Serious: No
  Sender: FDA-Public Use
  Company Number: None

PATIENT
  Age: 23 Year
  Sex: Female
  Weight: 45 kg

DRUGS (5)
  1. WELLBUTRIN SR [Concomitant]
     Active Substance: BUPROPION HYDROCHLORIDE
  2. TYLENOL [Concomitant]
     Active Substance: ACETAMINOPHEN
  3. CONCERTA [Concomitant]
     Active Substance: METHYLPHENIDATE HYDROCHLORIDE
  4. METHYLPHENIDATE ER 27MG [Suspect]
     Active Substance: METHYLPHENIDATE HYDROCHLORIDE
     Indication: ATTENTION DEFICIT/HYPERACTIVITY DISORDER
     Dosage: ?          QUANTITY:2 TABLET(S);?
     Route: 048
     Dates: start: 20171026, end: 20171110
  5. NORETHINDRONE. [Concomitant]
     Active Substance: NORETHINDRONE

REACTIONS (9)
  - Anxiety [None]
  - Abnormal behaviour [None]
  - Heart rate increased [None]
  - Abdominal discomfort [None]
  - Product substitution issue [None]
  - Dizziness [None]
  - Dysphoria [None]
  - Drug effect faster than expected [None]
  - Drug effect incomplete [None]

NARRATIVE: CASE EVENT DATE: 20171026
